FAERS Safety Report 8991186 (Version 1)
Quarter: 2012Q4

REPORT INFORMATION
  Report Type: 
  Country: RO (occurrence: RO)
  Receive Date: 20121231
  Receipt Date: 20121231
  Transmission Date: 20130627
  Serious: Yes (Other)
  Sender: FDA-Public Use
  Company Number: RO-RANBAXY-2012RR-63622

PATIENT
  Age: 80 Year
  Sex: Male
  Weight: 84 kg

DRUGS (2)
  1. ALERID [Suspect]
     Indication: DERMATITIS
     Dosage: 10 mg/day in the evening
     Route: 048
     Dates: start: 20110829, end: 20110830
  2. AVODARD [Concomitant]
     Indication: PROSTATIC ADENOMA
     Dosage: 1 DF/day in the evening
     Route: 048

REACTIONS (7)
  - Panic disorder [Recovered/Resolved]
  - Insomnia [Recovered/Resolved]
  - Restlessness [Recovered/Resolved]
  - Nightmare [Recovered/Resolved]
  - Hallucination [Recovered/Resolved]
  - Dizziness [Recovered/Resolved]
  - Malaise [Recovered/Resolved]
